FAERS Safety Report 4499724-X (Version None)
Quarter: 2004Q4

REPORT INFORMATION
  Report Type: 
  Country: None (occurrence: None)
  Receive Date: 20041110
  Receipt Date: 20041110
  Transmission Date: 20050328
  Serious: Yes (Death)
  Sender: FDA-Public Use
  Company Number: None

PATIENT
  Age: 27 Year
  Sex: Male

DRUGS (1)
  1. METHADONE [Suspect]
     Indication: DRUG ABUSER
     Dosage: 230MG  DAILY OTHER

REACTIONS (9)
  - ACUTE RESPIRATORY FAILURE [None]
  - BUNDLE BRANCH BLOCK RIGHT [None]
  - ELECTROCARDIOGRAM QRS COMPLEX PROLONGED [None]
  - FALL [None]
  - HAEMODIALYSIS [None]
  - INJURY [None]
  - RENAL FAILURE ACUTE [None]
  - RHABDOMYOLYSIS [None]
  - VENTRICULAR TACHYCARDIA [None]
